FAERS Safety Report 13375101 (Version 1)
Quarter: 2017Q1

REPORT INFORMATION
  Report Type: Report from Study
  Country: None (occurrence: AU)
  Receive Date: 20170327
  Receipt Date: 20170327
  Transmission Date: 20170429
  Serious: Yes (Hospitalization)
  Sender: FDA-Public Use
  Company Number: AU-ABBVIE-17P-008-1912817-00

PATIENT
  Age: 48 Year
  Sex: Female

DRUGS (1)
  1. HUMIRA [Suspect]
     Active Substance: ADALIMUMAB
     Indication: CROHN^S DISEASE
     Dosage: INDUCTION DOSE, 80MG
     Route: 058
     Dates: start: 20170315, end: 20170315

REACTIONS (6)
  - Malaise [Unknown]
  - Dermatitis allergic [Unknown]
  - Blood pressure increased [Unknown]
  - Allergic oedema [Unknown]
  - Pruritus allergic [Unknown]
  - Heart rate increased [Unknown]

NARRATIVE: CASE EVENT DATE: 20170316
